FAERS Safety Report 17173485 (Version 1)
Quarter: 2019Q4

REPORT INFORMATION
  Report Type: Spontaneous
  Country: US (occurrence: US)
  Receive Date: 20191218
  Receipt Date: 20191218
  Transmission Date: 20200122
  Serious: Yes (Hospitalization)
  Sender: FDA-Public Use
  Company Number: None

PATIENT
  Age: 84 Year
  Sex: Female
  Weight: 45 kg

DRUGS (7)
  1. LOSARTAN. [Concomitant]
     Active Substance: LOSARTAN
  2. FUROSEMIDE. [Concomitant]
     Active Substance: FUROSEMIDE
  3. ASPRIN [Concomitant]
     Active Substance: ASPIRIN
  4. GABAPENTIN. [Suspect]
     Active Substance: GABAPENTIN
     Indication: SEIZURE
     Dosage: ?          QUANTITY:100 TABLET(S);?
     Route: 048
     Dates: start: 20191118, end: 20191213
  5. BISOPROLOL [Concomitant]
     Active Substance: BISOPROLOL
  6. MELATONIN [Concomitant]
     Active Substance: MELATONIN
  7. VALTREX [Concomitant]
     Active Substance: VALACYCLOVIR HYDROCHLORIDE

REACTIONS (5)
  - Ataxia [None]
  - Withdrawal syndrome [None]
  - Immobile [None]
  - Hypertension [None]
  - Chest pain [None]

NARRATIVE: CASE EVENT DATE: 20191213
